FAERS Safety Report 6528340-0 (Version None)
Quarter: 2010Q1

REPORT INFORMATION
  Report Type: 
  Country: None (occurrence: None)
  Receive Date: 20100106
  Receipt Date: 20091229
  Transmission Date: 20100710
  Serious: Yes (Hospitalization)
  Sender: FDA-Public Use
  Company Number: PHEH2009US11285

PATIENT
  Sex: Female

DRUGS (2)
  1. EXJADE [Suspect]
     Indication: SICKLE CELL ANAEMIA
     Dosage: 1500 MG, QD
     Route: 048
     Dates: start: 20071001
  2. EXJADE [Suspect]
     Indication: IRON OVERLOAD

REACTIONS (4)
  - DIARRHOEA [None]
  - HEADACHE [None]
  - PAIN [None]
  - SICKLE CELL ANAEMIA WITH CRISIS [None]
